FAERS Safety Report 8474859-5 (Version None)
Quarter: 2012Q2

REPORT INFORMATION
  Report Type: 
  Country: None (occurrence: None)
  Receive Date: 20120628
  Receipt Date: 20120627
  Transmission Date: 20120825
  Serious: Yes (Hospitalization)
  Sender: FDA-Public Use
  Company Number: US-PFIZER INC-2012154949

PATIENT
  Sex: Female
  Weight: 62 kg

DRUGS (2)
  1. LORTAB [Concomitant]
     Indication: BACK PAIN
     Dosage: UNK, 3X/DAY
  2. NORVASC [Suspect]
     Indication: HYPERTENSION
     Dosage: UNKNOWN DOSE; DAILY

REACTIONS (2)
  - BLOOD POTASSIUM INCREASED [None]
  - ARTERIAL OCCLUSIVE DISEASE [None]
